FAERS Safety Report 6844828-7 (Version None)
Quarter: 2010Q3

REPORT INFORMATION
  Report Type: 
  Country: None (occurrence: None)
  Receive Date: 20100715
  Receipt Date: 20100705
  Transmission Date: 20110219
  Serious: Yes (Other)
  Sender: FDA-Public Use
  Company Number: JP-PFIZER INC-2010087688

PATIENT
  Age: 69 Year
  Sex: Female
  Weight: 69 kg

DRUGS (5)
  1. CAMPTOSAR [Suspect]
     Indication: COLORECTAL CANCER
     Dosage: 152.9 MG/M2, 260 MG
     Route: 041
     Dates: start: 20100224, end: 20100602
  2. CALCIUM LEVOFOLINATE [Concomitant]
     Indication: COLORECTAL CANCER
     Dosage: 200 MG/M2, 340 MG
     Route: 041
     Dates: start: 20100224, end: 20100602
  3. FLUOROURACIL [Concomitant]
     Indication: COLORECTAL CANCER
     Dosage: 405.9 MG/M2, 690 MG
     Route: 040
     Dates: start: 20100224, end: 20100602
  4. FLUOROURACIL [Concomitant]
     Dosage: 2411.8 MG/M2, 4100 MG
     Route: 041
     Dates: start: 20100224, end: 20100602
  5. AVASTIN [Concomitant]
     Indication: COLORECTAL CANCER
     Dosage: 340 MG
     Route: 041
     Dates: start: 20100224, end: 20100602

REACTIONS (1)
  - HERPES ZOSTER [None]
